FAERS Safety Report 19435938 (Version 1)
Quarter: 2021Q2

REPORT INFORMATION
  Report Type: Other
  Country: US (occurrence: US)
  Receive Date: 20210618
  Receipt Date: 20210618
  Transmission Date: 20210717
  Serious: Yes (Other)
  Sender: FDA-Public Use
  Company Number: US-P+L DEVELOPMENTS OF NEWYORK CORPORATION-2112858

PATIENT
  Age: 38 Year
  Sex: Female

DRUGS (1)
  1. OMEPRAZOLE DELAYED?RELEASE TABLETS, 20 MG [Suspect]
     Active Substance: OMEPRAZOLE
     Indication: GASTROOESOPHAGEAL REFLUX DISEASE
     Route: 065

REACTIONS (2)
  - Vitamin B12 deficiency [Unknown]
  - Optic neuropathy [Recovered/Resolved]
